FAERS Safety Report 5981545-X (Version None)
Quarter: 2008Q4

REPORT INFORMATION
  Report Type: 
  Country: None (occurrence: None)
  Receive Date: 20081126
  Receipt Date: 20080111
  Transmission Date: 20090506
  Serious: Yes (Other)
  Sender: FDA-Public Use
  Company Number: 2008BH000409

PATIENT
  Sex: Female

DRUGS (13)
  1. DIANEAL [Suspect]
     Indication: RENAL FAILURE CHRONIC
     Dosage: IP
     Route: 033
  2. EXTRANEAL [Suspect]
     Indication: RENAL FAILURE CHRONIC
     Dosage: IP
     Route: 033
  3. ASPIRIN [Concomitant]
  4. DIOVAN [Concomitant]
  5. EPOGEN [Concomitant]
  6. FOSRENOL [Concomitant]
  7. GLYBURIDE [Concomitant]
  8. ISOSORBIDE [Concomitant]
  9. LOVASTATIN [Concomitant]
  10. NEPHROVITE [Concomitant]
  11. AMLODIPINE [Concomitant]
  12. SENSIPAR [Concomitant]
  13. VENOFER [Concomitant]

REACTIONS (1)
  - PERITONITIS BACTERIAL [None]
